FAERS Safety Report 6058274-X (Version None)
Quarter: 2009Q1

REPORT INFORMATION
  Report Type: 
  Country: None (occurrence: None)
  Receive Date: 20090123
  Receipt Date: 20080521
  Transmission Date: 20090719
  Serious: Yes (Death, Hospitalization)
  Sender: FDA-Public Use
  Company Number: GXBR2008US01032

PATIENT
  Age: 91 Year
  Sex: Female
  Weight: 85.3 kg

DRUGS (3)
  1. AMIODARONE HCL [Suspect]
     Indication: ARRHYTHMIA
     Dosage: 200 MG, QD, ORAL, 1600 MG, QD, ORAL, 400 MG,
     Route: 048
     Dates: start: 20071101, end: 20080425
  2. AMIODARONE HCL [Suspect]
     Indication: ARRHYTHMIA
     Dosage: 200 MG, QD, ORAL, 1600 MG, QD, ORAL, 400 MG,
     Route: 048
     Dates: start: 20080426, end: 20080429
  3. AMIODARONE HCL [Suspect]
     Indication: ARRHYTHMIA
     Dosage: 200 MG, QD, ORAL, 1600 MG, QD, ORAL, 400 MG,
     Route: 048
     Dates: start: 20080430

REACTIONS (10)
  - ARRHYTHMIA [None]
  - CARDIAC PACEMAKER INSERTION [None]
  - DEATH [None]
  - DISORIENTATION [None]
  - FATIGUE [None]
  - HYPOXIA [None]
  - NAUSEA [None]
  - SKIN DISCOLOURATION [None]
  - TREMOR [None]
  - URINARY TRACT INFECTION [None]
